FAERS Safety Report 7915006-5 (Version None)
Quarter: 2011Q4

REPORT INFORMATION
  Report Type: 
  Country: None (occurrence: None)
  Receive Date: 20111115
  Receipt Date: 20111109
  Transmission Date: 20120403
  Serious: Yes (Hospitalization)
  Sender: FDA-Public Use
  Company Number: US-ROCHE-797388

PATIENT
  Sex: Male
  Weight: 67.1 kg

DRUGS (9)
  1. ACTEMRA [Suspect]
     Dosage: MOST RECENT ADMINISTRATION 20 JULY 2011, 8 MG/KG
     Route: 042
  2. ACTEMRA [Suspect]
     Route: 042
  3. PRILOSEC [Concomitant]
     Indication: PRODUCT USED FOR UNKNOWN INDICATION
  4. ACTEMRA [Suspect]
     Route: 042
     Dates: start: 20100921, end: 20110720
  5. ASPIRIN [Concomitant]
     Indication: PRODUCT USED FOR UNKNOWN INDICATION
     Route: 048
  6. LOPRESSOR [Concomitant]
     Indication: HYPERTENSION
     Route: 048
  7. ACTEMRA [Suspect]
     Indication: RHEUMATOID ARTHRITIS
     Dosage: FORM INFUSION, START DATE APPROX JUNE OR JULY 2010
     Route: 042
  8. ACTEMRA [Suspect]
     Route: 042
  9. ACTEMRA [Suspect]
     Route: 042

REACTIONS (2)
  - DERMATITIS [None]
  - CELLULITIS [None]
